FAERS Safety Report 7757760-1 (Version None)
Quarter: 2011Q3

REPORT INFORMATION
  Report Type: 
  Country: None (occurrence: None)
  Receive Date: 20110918
  Receipt Date: 20110908
  Transmission Date: 20111222
  Serious: Yes (Other)
  Sender: FDA-Public Use
  Company Number: HU-ASTRAZENECA-2011SE54633

PATIENT
  Age: 26 Year
  Sex: Male

DRUGS (2)
  1. SEROQUEL XR [Suspect]
     Indication: SCHIZOPHRENIA
     Route: 048
     Dates: start: 20110106
  2. RISPERDAL CONSTA [Concomitant]
     Indication: SCHIZOPHRENIA
     Route: 051

REACTIONS (3)
  - SCHIZOPHRENIA [None]
  - PARANOIA [None]
  - HALLUCINATION [None]
